FAERS Safety Report 4490684-4 (Version None)
Quarter: 2004Q4

REPORT INFORMATION
  Report Type: 
  Country: None (occurrence: None)
  Receive Date: 20041102
  Receipt Date: 20041011
  Transmission Date: 20050328
  Serious: Yes (Other)
  Sender: FDA-Public Use
  Company Number: GB-GLAXOSMITHKLINE-B0347734A

PATIENT
  Age: 54 Year
  Sex: Female
  Weight: 89.1 kg

DRUGS (2)
  1. SEROXAT [Suspect]
     Indication: PANIC ATTACK
     Route: 048
  2. VALIUM [Concomitant]
     Indication: PANIC ATTACK
     Route: 065

REACTIONS (7)
  - ANXIETY [None]
  - ARTHRALGIA [None]
  - DRUG WITHDRAWAL SYNDROME [None]
  - PANIC ATTACK [None]
  - SUICIDAL IDEATION [None]
  - TACHYCARDIA [None]
  - VISUAL ACUITY REDUCED [None]
